FAERS Safety Report 6187651-1 (Version None)
Quarter: 2009Q2

REPORT INFORMATION
  Report Type: 
  Country: None (occurrence: None)
  Receive Date: 20090511
  Receipt Date: 20090427
  Transmission Date: 20091009
  Serious: No
  Sender: FDA-Public Use
  Company Number: SPI200900148

PATIENT
  Age: 40 Year
  Sex: Female
  Weight: 59 kg

DRUGS (5)
  1. AMITIZA [Suspect]
     Indication: CONSTIPATION
     Dosage: 24 MCG, BID, ORAL;  24 MCG, QD
     Route: 048
     Dates: start: 20090415, end: 20090415
  2. AMITIZA [Suspect]
     Indication: CONSTIPATION
     Dosage: 24 MCG, BID, ORAL;  24 MCG, QD
     Route: 048
     Dates: start: 20090415, end: 20090418
  3. CYMBALTA [Concomitant]
  4. LUTERA-28 (ETHINYLESTRADIOL, LEVONORGESTREL) [Concomitant]
  5. THYROID TAB [Concomitant]

REACTIONS (3)
  - CHEST PAIN [None]
  - FEELING ABNORMAL [None]
  - INCONTINENCE [None]
